FAERS Safety Report 5394957-2 (Version None)
Quarter: 2007Q3

REPORT INFORMATION
  Report Type: 
  Country: None (occurrence: None)
  Receive Date: 20070724
  Receipt Date: 20070716
  Transmission Date: 20080115
  Serious: Yes (Other)
  Sender: FDA-Public Use
  Company Number: PHEH2007US09980

PATIENT
  Age: 53 Year
  Sex: Female

DRUGS (1)
  1. ZELNORM [Suspect]
     Indication: IRRITABLE BOWEL SYNDROME
     Dosage: UNK, QD
     Route: 048
     Dates: start: 20050101, end: 20070301

REACTIONS (6)
  - ASTHENIA [None]
  - DIZZINESS [None]
  - EPISTAXIS [None]
  - HYPERTENSION [None]
  - MYALGIA [None]
  - PALPITATIONS [None]
